FAERS Safety Report 9763896 (Version 1)
Quarter: 2013Q4

REPORT INFORMATION
  Report Type: Spontaneous
  Country: US (occurrence: US)
  Receive Date: 20131216
  Receipt Date: 20131216
  Transmission Date: 20140711
  Serious: No
  Sender: FDA-Public Use
  Company Number: US-BIOGENIDEC-2013BI116696

PATIENT
  Sex: Female

DRUGS (11)
  1. TECFIDERA [Suspect]
     Indication: MULTIPLE SCLEROSIS
     Route: 048
     Dates: start: 201311
  2. SINGULAIR [Concomitant]
  3. METFORMIN [Concomitant]
  4. TOPIRAMATE [Concomitant]
  5. LISINOPRIL [Concomitant]
  6. LEVOTHYROXINE [Concomitant]
  7. IRON [Concomitant]
  8. VITAMIN B12 [Concomitant]
  9. LORATADINE [Concomitant]
  10. BYETTA [Concomitant]
  11. OMEGA-3 + VITAMIN D3 [Concomitant]

REACTIONS (5)
  - Dizziness [Unknown]
  - Flushing [Unknown]
  - Nausea [Unknown]
  - Diarrhoea [Unknown]
  - Abdominal pain upper [Unknown]
